FAERS Safety Report 9039359 (Version 1)
Quarter: 2013Q1

REPORT INFORMATION
  Report Type: Spontaneous
  Country: US (occurrence: None)
  Receive Date: 20130123
  Receipt Date: 20130123
  Transmission Date: 20140127
  Serious: No
  Sender: FDA-Public Use
  Company Number: None

PATIENT
  Sex: Male
  Weight: 102.06 kg

DRUGS (1)
  1. VIIBRYD [Suspect]
     Indication: DEPRESSION
     Dates: start: 20121210, end: 20121231

REACTIONS (5)
  - Diarrhoea [None]
  - Paraesthesia [None]
  - Affective disorder [None]
  - Anger [None]
  - Irritability [None]
